FAERS Safety Report 9356270 (Version 2)
Quarter: 2014Q1

REPORT INFORMATION
  Report Type: Spontaneous
  Country: US (occurrence: US)
  Receive Date: 20130619
  Receipt Date: 20140203
  Transmission Date: 20141002
  Serious: Yes (Other)
  Sender: FDA-Public Use
  Company Number: US-PURDUE-USA-2013-0102393

PATIENT
  Age: 50 Year
  Sex: Female

DRUGS (13)
  1. BUTRANS [Suspect]
     Indication: PAIN
     Dosage: 20 MCG/HR, WEEKLY
     Route: 062
     Dates: start: 201210, end: 20130514
  2. BUTRANS [Suspect]
     Indication: COMPLEX REGIONAL PAIN SYNDROME
  3. PRILOSEC                           /00661201/ [Concomitant]
     Indication: GASTROOESOPHAGEAL REFLUX DISEASE
     Dosage: 20 MG, DAILY
     Route: 048
  4. NEURONTIN [Concomitant]
     Indication: COMPLEX REGIONAL PAIN SYNDROME
     Dosage: 300 MG, TID
     Route: 048
     Dates: start: 2012
  5. LEVOTHYROXINE [Concomitant]
     Indication: THYROID DISORDER
     Dosage: 25 MCG, DAILY
     Route: 048
  6. LISINOPRIL [Concomitant]
     Indication: BLOOD PRESSURE
     Dosage: 20 MG, DAILY
     Route: 048
  7. NOVOLOG [Concomitant]
     Indication: DIABETES MELLITUS
     Dosage: SLIDING SCALE, PRN
     Route: 058
  8. LANTUS [Concomitant]
     Indication: DIABETES MELLITUS
     Dosage: 60 MG, DAILY
     Route: 058
  9. NUCYNTA [Concomitant]
     Indication: PAIN
     Dosage: 100 MG, DAILY
     Route: 048
     Dates: start: 2010
  10. ALBUTEROL                          /00139501/ [Concomitant]
     Indication: PRODUCT USED FOR UNKNOWN INDICATION
  11. ADVAIR HFA [Concomitant]
     Indication: PRODUCT USED FOR UNKNOWN INDICATION
  12. HUMALOG [Concomitant]
     Indication: PRODUCT USED FOR UNKNOWN INDICATION
  13. CELEBREX [Concomitant]
     Indication: PRODUCT USED FOR UNKNOWN INDICATION

REACTIONS (10)
  - Renal mass [Unknown]
  - Drug withdrawal syndrome [Not Recovered/Not Resolved]
  - Blood glucose abnormal [Unknown]
  - Pain [Not Recovered/Not Resolved]
  - Hyperhidrosis [Unknown]
  - Feeling jittery [Not Recovered/Not Resolved]
  - Anxiety [Not Recovered/Not Resolved]
  - Chills [Not Recovered/Not Resolved]
  - Product adhesion issue [Unknown]
  - Insomnia [Unknown]
